FAERS Safety Report 12377800 (Version 1)
Quarter: 2016Q2

REPORT INFORMATION
  Report Type: Spontaneous
  Country: US (occurrence: US)
  Receive Date: 20160517
  Receipt Date: 20160517
  Transmission Date: 20160815
  Serious: No
  Sender: FDA-Public Use
  Company Number: US-MALLINCKRODT-T201600641

PATIENT
  Age: 69 Year
  Sex: Female
  Weight: 73 kg

DRUGS (14)
  1. PLAVIX [Concomitant]
     Active Substance: CLOPIDOGREL BISULFATE
  2. VITAMIN B12 [Concomitant]
     Active Substance: CYANOCOBALAMIN
  3. VOLTAREN [Concomitant]
     Active Substance: DICLOFENAC SODIUM
  4. H.P. ACTHAR [Suspect]
     Active Substance: CORTICOTROPIN
     Indication: MULTIPLE SCLEROSIS
     Dosage: 1ML ,ONCE DAILY FOR 5 DAYS
     Route: 058
     Dates: start: 20160223
  5. ASPIRIN 81 [Concomitant]
     Active Substance: ASPIRIN
  6. NIACIN. [Concomitant]
     Active Substance: NIACIN
  7. METFORMIN [Concomitant]
     Active Substance: METFORMIN HYDROCHLORIDE
  8. TECFIDERA [Concomitant]
     Active Substance: DIMETHYL FUMARATE
  9. VITAMIN D [Concomitant]
     Active Substance: CHOLECALCIFEROL
     Dosage: 50,000  IU
  10. LYRICA [Concomitant]
     Active Substance: PREGABALIN
  11. ATENOLOL. [Concomitant]
     Active Substance: ATENOLOL
  12. OMEPRAZOLE. [Concomitant]
     Active Substance: OMEPRAZOLE
  13. BACLOFEN. [Concomitant]
     Active Substance: BACLOFEN
  14. AMLODIPINE [Concomitant]
     Active Substance: AMLODIPINE BESYLATE

REACTIONS (5)
  - Nodule [Recovered/Resolved]
  - Pain in extremity [Unknown]
  - Injection site haemorrhage [Recovered/Resolved]
  - Nail bed disorder [Recovered/Resolved]
  - Peripheral swelling [Not Recovered/Not Resolved]

NARRATIVE: CASE EVENT DATE: 20160223
